FAERS Safety Report 4745932-X (Version None)
Quarter: 2005Q3

REPORT INFORMATION
  Report Type: 
  Country: None (occurrence: None)
  Receive Date: 20050816
  Receipt Date: 20041203
  Transmission Date: 20060218
  Serious: Yes (Other)
  Sender: FDA-Public Use
  Company Number: GB-GLAXOSMITHKLINE-B0360528A

PATIENT
  Sex: Male

DRUGS (3)
  1. PAROXETINE HYDROCHLORIDE [Suspect]
     Indication: ANXIETY
     Route: 065
     Dates: start: 20011101
  2. PAROXETINE HYDROCHLORIDE [Suspect]
     Route: 048
  3. CODYDRAMOL [Suspect]
     Indication: MUSCULOSKELETAL PAIN
     Dates: start: 20011101

REACTIONS (15)
  - ABNORMAL BEHAVIOUR [None]
  - AGGRESSION [None]
  - AGITATION [None]
  - ANXIETY [None]
  - DISTURBANCE IN ATTENTION [None]
  - DIZZINESS [None]
  - DRUG WITHDRAWAL SYNDROME [None]
  - HEADACHE [None]
  - HYPERHIDROSIS [None]
  - INSOMNIA [None]
  - JUDGEMENT IMPAIRED [None]
  - LEGAL PROBLEM [None]
  - NAUSEA [None]
  - PARAESTHESIA [None]
  - PERSONALITY CHANGE [None]
